FAERS Safety Report 16451702 (Version 2)
Quarter: 2019Q3

REPORT INFORMATION
  Report Type: Spontaneous
  Country: US (occurrence: US)
  Receive Date: 20190619
  Receipt Date: 20190808
  Transmission Date: 20191004
  Serious: Yes (Other)
  Sender: FDA-Public Use
  Company Number: US-AKORN PHARMACEUTICALS-2019AKN01272

PATIENT
  Sex: Female
  Weight: 56 kg

DRUGS (4)
  1. MYORISAN [Suspect]
     Active Substance: ISOTRETINOIN
     Dosage: 30 MG (TOTAL DOSE OF 50 MG)
     Dates: start: 20190415, end: 20190510
  2. CLARAVIS [Suspect]
     Active Substance: ISOTRETINOIN
     Indication: ACNE
     Dosage: 50 MG (TOTAL DOSE OF 50 MG)
     Dates: start: 20190312, end: 20190510
  3. MYORISAN [Suspect]
     Active Substance: ISOTRETINOIN
     Indication: ACNE
     Dosage: 30 MG
     Dates: start: 20181221, end: 2019
  4. CLARAVIS [Suspect]
     Active Substance: ISOTRETINOIN
     Indication: ACNE
     Dosage: 40 MG
     Dates: start: 20190203, end: 20190305

REACTIONS (2)
  - Dissociation [Unknown]
  - Anxiety [Unknown]

NARRATIVE: CASE EVENT DATE: 2019
